FAERS Safety Report 24062227 (Version 2)
Quarter: 2024Q3

REPORT INFORMATION
  Report Type: Report from Study
  Country: CN (occurrence: CN)
  Receive Date: 20240708
  Receipt Date: 20240829
  Transmission Date: 20241017
  Serious: Yes (Other)
  Sender: G1 THERAPEUTICS
  Company Number: CN-SIMCERE PHARMACEUTICAL CO., LTD.-2024XSYY2739

PATIENT

DRUGS (1)
  1. TRILACICLIB [Suspect]
     Active Substance: TRILACICLIB
     Indication: Cervix carcinoma
     Dosage: UNK
     Route: 042
     Dates: start: 20240606, end: 20240606

REACTIONS (1)
  - Hypersensitivity [Recovered/Resolved]

NARRATIVE: CASE EVENT DATE: 20240606
